FAERS Safety Report 8825875 (Version 1)
Quarter: 2012Q4

REPORT INFORMATION
  Report Type: 
  Country: US (occurrence: US)
  Receive Date: 20121005
  Receipt Date: 20121005
  Transmission Date: 20130627
  Serious: Yes (Other)
  Sender: FDA-Public Use
  Company Number: US-PERRIGO-12US008581

PATIENT
  Sex: Male

DRUGS (1)
  1. IBUPROFEN 200MG-DIPHENHYDRAMINE CITRATE 38 MG 8K7 [Suspect]
     Indication: INSOMNIA
     Dosage: 20 to 24 tablets, single
     Route: 048
     Dates: start: 20120926, end: 20120926

REACTIONS (1)
  - Intentional overdose [Unknown]
